FAERS Safety Report 9775172 (Version 1)
Quarter: 2013Q4

REPORT INFORMATION
  Report Type: Report from Study
  Country: US (occurrence: US)
  Receive Date: 20131220
  Receipt Date: 20131220
  Transmission Date: 20140711
  Serious: Yes (Other)
  Sender: FDA-Public Use
  Company Number: US-ROCHE-1321380

PATIENT
  Age: 34 Year
  Sex: Female
  Weight: 65.83 kg

DRUGS (4)
  1. XOLAIR [Suspect]
     Indication: ASTHMA
     Route: 065
     Dates: start: 2006
  2. COLACE [Concomitant]
     Indication: CONSTIPATION
     Route: 048
     Dates: start: 20130801
  3. PULMICORT [Concomitant]
     Indication: ASTHMA
     Route: 065
     Dates: start: 2011
  4. LEXAPRO [Concomitant]
     Indication: POSTPARTUM DEPRESSION
     Route: 048
     Dates: start: 20130806

REACTIONS (2)
  - Abortion spontaneous [Unknown]
  - Maternal exposure during pregnancy [Unknown]
